FAERS Safety Report 15860130 (Version 2)
Quarter: 2019Q1

REPORT INFORMATION
  Report Type: Report from Study
  Country: US (occurrence: US)
  Receive Date: 20190123
  Receipt Date: 20190222
  Transmission Date: 20190417
  Serious: Yes (Other)
  Sender: FDA-Public Use
  Company Number: US-TAKEDA-2019TUS001672

PATIENT
  Sex: Female

DRUGS (1)
  1. IXAZOMIB [Suspect]
     Active Substance: IXAZOMIB
     Indication: PLASMA CELL MYELOMA
     Dosage: 4 MILLIGRAM
     Route: 048
     Dates: start: 20190118

REACTIONS (4)
  - Nerve injury [Not Recovered/Not Resolved]
  - Off label use [Unknown]
  - Plasma cell myeloma recurrent [Unknown]
  - Hypoaesthesia [Not Recovered/Not Resolved]
